FAERS Safety Report 8906769 (Version 3)
Quarter: 2012Q4

REPORT INFORMATION
  Report Type: 
  Country: US (occurrence: US)
  Receive Date: 20121114
  Receipt Date: 20121127
  Transmission Date: 20130627
  Serious: Yes (Other)
  Sender: FDA-Public Use
  Company Number: US-SANOFI-AVENTIS-2012SA082953

PATIENT
  Age: 83 Year
  Sex: Female

DRUGS (20)
  1. CLOPIDOGREL BISULFATE [Suspect]
     Indication: ACUTE CORONARY SYNDROME
     Route: 048
     Dates: start: 20121003, end: 20121003
  2. CLOPIDOGREL BISULFATE [Suspect]
     Indication: ACUTE CORONARY SYNDROME
     Route: 048
     Dates: start: 20121004
  3. ECOTRIN [Suspect]
     Indication: ACUTE CORONARY SYNDROME
     Route: 048
  4. ECOTRIN [Suspect]
     Indication: ACUTE CORONARY SYNDROME
     Route: 048
     Dates: start: 20121004, end: 20121004
  5. ECOTRIN [Suspect]
     Indication: ACUTE CORONARY SYNDROME
     Route: 048
     Dates: start: 20121005
  6. BLINDED THERAPY [Suspect]
     Indication: ACUTE CORONARY SYNDROME
     Route: 042
     Dates: start: 20121003, end: 20121004
  7. VITAMIN B12 [Concomitant]
     Dates: start: 20121004, end: 20121006
  8. NIFEREX [Concomitant]
     Dates: start: 20121004
  9. PEPCID [Concomitant]
     Dates: start: 20121004, end: 20121006
  10. XANAX [Concomitant]
     Dates: start: 20121004
  11. INFLUENZA VACCINE [Concomitant]
     Dates: start: 20121004, end: 20121004
  12. ZESTRIL [Concomitant]
     Dates: start: 20121003, end: 20121006
  13. CALCIUM/VITAMIN D [Concomitant]
     Dosage: Dose:2 unit(s)
     Dates: start: 20121004
  14. VITAMIN B6 [Concomitant]
     Dates: start: 20121004
  15. PRAVASTATIN [Concomitant]
     Dates: start: 20121003, end: 20121005
  16. DILTIAZEM [Concomitant]
     Dates: start: 20121004
  17. HYDRODIURIL [Concomitant]
     Dates: start: 20121004
  18. LEVOTHYROXINE [Concomitant]
     Dates: start: 20121004
  19. INSULIN [Concomitant]
     Dosage: Dose:8 unit(s)
     Dates: start: 20121004, end: 20121006
  20. ACETAMINOPHEN [Concomitant]
     Dates: start: 20121003, end: 20121003

REACTIONS (1)
  - Iron deficiency anaemia [Recovered/Resolved]
